FAERS Safety Report 8276179-0 (Version None)
Quarter: 2012Q2

REPORT INFORMATION
  Report Type: 
  Country: None (occurrence: None)
  Receive Date: 20120405
  Receipt Date: 20120327
  Transmission Date: 20120825
  Serious: Yes (Other)
  Sender: FDA-Public Use
  Company Number: ACO_29904_2012

PATIENT
  Age: 23 Year
  Sex: Female

DRUGS (11)
  1. MYDOCALM /00293002/ (TOLPERISONE HYDROCHLORIDE) [Concomitant]
  2. BELARA (CHLORMADINONE ACETATE, ETHINYLESTRADIOL) [Concomitant]
  3. SPIRICORT (PREDNISOLONE) [Concomitant]
  4. ZALDIAR (PARACETAMOL, TRAMADOL HYDROCHLORIDE) [Concomitant]
  5. TIZANIDINE HYDROCHLORIDE [Suspect]
     Indication: BACK PAIN
     Dosage: 4 MG, BID, TRANSPLACENTAL
     Route: 064
     Dates: start: 20110907, end: 20120201
  6. KETESSE (DEXKETOPROFEN TROMETAMOL) [Concomitant]
  7. KENACORT /00031901/ (TRIAMCINOLONE) [Concomitant]
  8. IRFEN (IBUPROFEN) [Concomitant]
  9. TRAMADOL HYDROHLORIDE [Concomitant]
  10. LIDOCAINE [Concomitant]
  11. LEXOTANIL (BROMAZEPAM) [Concomitant]

REACTIONS (2)
  - MATERNAL EXPOSURE DURING PREGNANCY [None]
  - PREGNANCY ON ORAL CONTRACEPTIVE [None]
